FAERS Safety Report 25739546 (Version 1)
Quarter: 2025Q3

REPORT INFORMATION
  Report Type: Spontaneous
  Country: US (occurrence: US)
  Receive Date: 20250829
  Receipt Date: 20250829
  Transmission Date: 20251020
  Serious: No
  Sender: ROCHE
  Company Number: US-ROCHE-10000369501

PATIENT
  Sex: Female

DRUGS (13)
  1. XOLAIR [Suspect]
     Active Substance: OMALIZUMAB
     Indication: Asthma
     Route: 058
  2. ZYRTEC ALLERGY CAP 10 MG [Concomitant]
  3. ALBUTEROL SU NEB 2.5 MG [Concomitant]
  4. ASPIRIN TBE 81 MG [Concomitant]
  5. ATORVASTATIN TAB 10 MG [Concomitant]
  6. CARVEDILOL TAB 6.25 MG [Concomitant]
  7. LORAZEPAM TAB 0.5 MG [Concomitant]
  8. MAGNESIUM OX TAB 400 MG [Concomitant]
  9. METOPROLOL T TAB 50 MG [Concomitant]
  10. MONTELUKAST TAB 10 MG [Concomitant]
  11. TRELEGY ELLI AEP 200 - 62.5 [Concomitant]
  12. VITAMIN C TAB 500 MG [Concomitant]
  13. XYZAL ALLERGY TAB 5 MG [Concomitant]

REACTIONS (3)
  - Urine odour abnormal [Unknown]
  - Liver function test abnormal [Unknown]
  - Drug ineffective [Unknown]
